FAERS Safety Report 16047786 (Version 1)
Quarter: 2019Q1

REPORT INFORMATION
  Report Type: Spontaneous
  Country: US (occurrence: US)
  Receive Date: 20190307
  Receipt Date: 20190307
  Transmission Date: 20190418
  Serious: Yes (Other)
  Sender: FDA-Public Use
  Company Number: US-INTERCEPT-PMOCA2017001751

PATIENT

DRUGS (59)
  1. VIRTUSSIN AC [Concomitant]
     Active Substance: CODEINE PHOSPHATE\GUAIFENESIN
     Dosage: 100-10/5
     Dates: start: 20180515
  2. BACLOFEN. [Concomitant]
     Active Substance: BACLOFEN
     Dosage: 10 UNK, UNK
     Dates: start: 20170710, end: 20171216
  3. BACLOFEN. [Concomitant]
     Active Substance: BACLOFEN
     Dosage: 10 UNK, UNK
     Dates: start: 20170611, end: 20170810
  4. PREDNISONE. [Concomitant]
     Active Substance: PREDNISONE
     Dosage: 5 UNK, UNK
     Dates: start: 20180208, end: 20180807
  5. URSODIOL. [Concomitant]
     Active Substance: URSODIOL
     Dosage: 500 MG, BID
     Dates: start: 20170222, end: 20180329
  6. URSODIOL. [Concomitant]
     Active Substance: URSODIOL
     Dosage: 500 MG, UNK
     Dates: start: 20170905, end: 20171104
  7. VITAMIN D3 [Concomitant]
     Active Substance: CHOLECALCIFEROL
     Dosage: 2000 UT, UNK
     Dates: start: 20170222
  8. METOPROLOL SUCCINATE. [Concomitant]
     Active Substance: METOPROLOL SUCCINATE
     Dosage: 50 MG, UNK
     Dates: start: 20171116
  9. GABAPENTIN. [Concomitant]
     Active Substance: GABAPENTIN
     Dosage: 300 MG, UNK
     Dates: start: 20171108, end: 20171230
  10. HYDROCODONE BITARTRATE AND ACETAMINOPHEN [Concomitant]
     Active Substance: ACETAMINOPHEN\HYDROCODONE BITARTRATE
     Dosage: 5-325 MG, UNK
     Dates: start: 20170913
  11. VIRTUSSIN AC [Concomitant]
     Active Substance: CODEINE PHOSPHATE\GUAIFENESIN
     Dosage: 100-10/5
     Dates: start: 20180503, end: 20180515
  12. VIRTUSSIN AC [Concomitant]
     Active Substance: CODEINE PHOSPHATE\GUAIFENESIN
     Dosage: 100-10/5
     Dates: start: 20180510, end: 20180522
  13. PILOCARPINE. [Concomitant]
     Active Substance: PILOCARPINE
     Dosage: 5 UNK, UNK
     Dates: start: 20171001, end: 20180530
  14. OMEPRAZOLE. [Concomitant]
     Active Substance: OMEPRAZOLE
     Dosage: 20 MG, UNK
     Dates: start: 20170222
  15. MELOXICAM. [Concomitant]
     Active Substance: MELOXICAM
     Dosage: 15 UNK, UNK
     Dates: start: 20180402, end: 20180928
  16. LEVOFLOXACIN. [Concomitant]
     Active Substance: LEVOFLOXACIN
     Dosage: 500 MG, UNK
     Dates: start: 20180503, end: 20180523
  17. MOXIFLOXACIN. [Concomitant]
     Active Substance: MOXIFLOXACIN
     Dosage: 0.5 %, UNK
     Dates: start: 20180423, end: 20180602
  18. ALBUTEROL. [Concomitant]
     Active Substance: ALBUTEROL
     Dosage: 0.083 %, UNK
     Dates: start: 20160615
  19. OCALIVA [Suspect]
     Active Substance: OBETICHOLIC ACID
     Indication: PRIMARY BILIARY CHOLANGITIS
     Dosage: 5 MG, QD
     Route: 048
     Dates: start: 20170302
  20. CARTIA [Concomitant]
     Dosage: 240/24
     Dates: start: 20171102, end: 20180101
  21. CLOPIDOGREL [Concomitant]
     Active Substance: CLOPIDOGREL BISULFATE
     Dosage: 75 MG, UNK
     Dates: start: 20170618, end: 20170818
  22. PREDNISONE. [Concomitant]
     Active Substance: PREDNISONE
     Dosage: 5 UNK, UNK
     Dates: start: 20170907, end: 20180308
  23. PILOCARPINE. [Concomitant]
     Active Substance: PILOCARPINE
     Dosage: 5 MG, UNK
     Dates: start: 20170222
  24. METOPROLOL SUCCINATE. [Concomitant]
     Active Substance: METOPROLOL SUCCINATE
     Dosage: 50 UNK, UNK
     Dates: start: 20180508, end: 20180707
  25. ALBUMIN-ZLB [Concomitant]
     Dosage: 25 %, UNK
     Dates: start: 20170222
  26. OCALIVA [Suspect]
     Active Substance: OBETICHOLIC ACID
     Indication: HEPATIC CIRRHOSIS
  27. PREDNISONE. [Concomitant]
     Active Substance: PREDNISONE
     Dosage: 5 UNK, UNK
     Dates: start: 20170222
  28. PILOCARPINE. [Concomitant]
     Active Substance: PILOCARPINE
     Dosage: 5 UNK, UNK
     Dates: start: 20180430, end: 20180628
  29. OMEPRAZOLE. [Concomitant]
     Active Substance: OMEPRAZOLE
     Dosage: 20 UNK, UNK
     Dates: start: 20171112, end: 20180111
  30. MELOXICAM. [Concomitant]
     Active Substance: MELOXICAM
     Dosage: 15 UNK, UNK
     Dates: start: 20170326, end: 20171026
  31. HYDROCODONE BITARTRATE AND ACETAMINOPHEN [Concomitant]
     Active Substance: ACETAMINOPHEN\HYDROCODONE BITARTRATE
     Dosage: 5-325 MG, UNK
     Dates: start: 20171108, end: 20171111
  32. XIIDRA [Concomitant]
     Active Substance: LIFITEGRAST
     Dosage: 5 %, UNK
     Dates: start: 20180124, end: 20180325
  33. SYMBICORT [Concomitant]
     Active Substance: BUDESONIDE\FORMOTEROL FUMARATE DIHYDRATE
     Dosage: 160-4.5
     Dates: start: 20180615
  34. BACLOFEN. [Concomitant]
     Active Substance: BACLOFEN
     Dosage: 10 MG, UNK
     Dates: start: 20170222
  35. CARTIA [Concomitant]
     Dosage: 240/24
     Dates: start: 20171205, end: 20180203
  36. MELOXICAM. [Concomitant]
     Active Substance: MELOXICAM
     Dosage: 15 MG, UNK
     Dates: start: 20170826, end: 20171026
  37. MELOXICAM. [Concomitant]
     Active Substance: MELOXICAM
     Dosage: 15 UNK, UNK
     Dates: start: 20170222
  38. MELOXICAM. [Concomitant]
     Active Substance: MELOXICAM
     Dosage: 15 UNK, UNK
     Dates: start: 20180402, end: 20180929
  39. MELOXICAM. [Concomitant]
     Active Substance: MELOXICAM
     Dosage: 15 UNK, UNK
     Dates: start: 20171213, end: 20180430
  40. METHYPRED [Concomitant]
     Dosage: 4 MG, UNK
     Dates: start: 20180503, end: 20180515
  41. CLOPIDOGREL [Concomitant]
     Active Substance: CLOPIDOGREL BISULFATE
     Dosage: 75 UNK, UNK
     Dates: start: 20180430, end: 20180829
  42. CLOPIDOGREL [Concomitant]
     Active Substance: CLOPIDOGREL BISULFATE
     Dosage: 75 UNK, UNK
     Dates: start: 20170717, end: 20171114
  43. MELOXICAM. [Concomitant]
     Active Substance: MELOXICAM
     Dosage: 15 UNK, UNK
     Dates: start: 20170801, end: 20180111
  44. PREDNISONE. [Concomitant]
     Active Substance: PREDNISONE
     Dosage: 5 MG, UNK
     Dates: start: 20170428, end: 20171025
  45. OMEPRAZOLE. [Concomitant]
     Active Substance: OMEPRAZOLE
     Dosage: 20 UNK, UNK
     Dates: start: 20180402, end: 20180828
  46. OMEPRAZOLE. [Concomitant]
     Active Substance: OMEPRAZOLE
     Dosage: 20 UNK, UNK
     Dates: start: 2017, end: 201712
  47. OMEPRAZOLE. [Concomitant]
     Active Substance: OMEPRAZOLE
     Dosage: 20 UNK, UNK
     Dates: start: 20180321, end: 20180620
  48. METOPROLOL SUCCINATE. [Concomitant]
     Active Substance: METOPROLOL SUCCINATE
     Dosage: 50 MG, UNK
     Dates: start: 20171115, end: 20180808
  49. PROAIR HFA [Concomitant]
     Active Substance: ALBUTEROL SULFATE
     Dosage: UNK
     Dates: start: 20180503, end: 20180612
  50. BACLOFEN. [Concomitant]
     Active Substance: BACLOFEN
     Dosage: 10 UNK, UNK
     Dates: start: 20180508, end: 20180705
  51. CARTIA [Concomitant]
     Dosage: 120/24 UNK, UNK
     Dates: start: 20170222
  52. CARTIA [Concomitant]
     Dosage: 120/24
     Dates: start: 20170608, end: 20180328
  53. CLOPIDOGREL [Concomitant]
     Active Substance: CLOPIDOGREL BISULFATE
     Dosage: 75 MG, UNK
     Dates: start: 20170222
  54. CLOPIDOGREL [Concomitant]
     Active Substance: CLOPIDOGREL BISULFATE
     Dosage: 75 UNK, UNK
     Dates: start: 20180321, end: 20180520
  55. PREDNISONE. [Concomitant]
     Active Substance: PREDNISONE
     Dosage: 5 UNK, UNK
     Dates: start: 20180208, end: 20180808
  56. TYLENOL [Concomitant]
     Active Substance: ACETAMINOPHEN
     Dosage: 500 MG, UNK
     Dates: start: 20040405
  57. MELOXICAM. [Concomitant]
     Active Substance: MELOXICAM
     Dosage: 15 UNK, UNK
     Dates: start: 20180331, end: 20180530
  58. FLUTICASONE. [Concomitant]
     Active Substance: FLUTICASONE
     Dosage: 50 MCG, UNK
     Dates: start: 20180503, end: 20180702
  59. IRON [Concomitant]
     Active Substance: IRON
     Dosage: 45 MG, UNK
     Dates: start: 20170222

REACTIONS (2)
  - Hepatic cirrhosis [Not Recovered/Not Resolved]
  - Product dose omission [Unknown]
